FAERS Safety Report 9845031 (Version 4)
Quarter: 2015Q1

REPORT INFORMATION
  Report Type: Spontaneous
  Country: JP (occurrence: JP)
  Receive Date: 20140127
  Receipt Date: 20150302
  Transmission Date: 20150721
  Serious: Yes (Life-Threatening)
  Sender: FDA-Public Use
  Company Number: JP-ROCHE-1339032

PATIENT
  Age: 56 Year
  Sex: Female
  Weight: 46 kg

DRUGS (11)
  1. HYPEN (JAPAN) [Concomitant]
     Indication: BREAST CANCER
     Route: 048
     Dates: start: 20130926
  2. PERJETA [Suspect]
     Active Substance: PERTUZUMAB
     Route: 041
     Dates: start: 20131113
  3. CODEINE PHOSPHATE [Concomitant]
     Active Substance: CODEINE PHOSPHATE
     Indication: METASTASES TO LUNG
     Route: 048
     Dates: start: 20131101
  4. HYSRON [Concomitant]
     Active Substance: MEDROXYPROGESTERONE
     Indication: BREAST CANCER
     Route: 048
     Dates: start: 20131112
  5. TAKEPRON [Concomitant]
     Active Substance: LANSOPRAZOLE
     Indication: PROPHYLAXIS
     Route: 048
     Dates: start: 20131101
  6. PERJETA [Suspect]
     Active Substance: PERTUZUMAB
     Indication: BREAST CANCER
     Route: 041
     Dates: start: 20131023, end: 20131023
  7. TAXOTERE [Suspect]
     Active Substance: DOCETAXEL
     Indication: BREAST CANCER
     Dosage: DOSAGE IS UNCERTAIN.
     Route: 041
     Dates: start: 20131023
  8. HERCEPTIN [Suspect]
     Active Substance: TRASTUZUMAB
     Indication: BREAST CANCER
     Route: 041
     Dates: start: 20131023, end: 20131023
  9. HERCEPTIN [Suspect]
     Active Substance: TRASTUZUMAB
     Route: 041
     Dates: start: 20131113
  10. REBAMIPIDE [Concomitant]
     Active Substance: REBAMIPIDE
     Indication: PROPHYLAXIS
     Route: 048
     Dates: start: 20131101
  11. PICIBANIL [Concomitant]
     Active Substance: OK-432
     Indication: BREAST CANCER
     Dosage: 5KE
     Route: 038
     Dates: start: 20131220, end: 20131220

REACTIONS (2)
  - Interstitial lung disease [Recovered/Resolved]
  - Pneumothorax [Recovered/Resolved]

NARRATIVE: CASE EVENT DATE: 20131102
